FAERS Safety Report 6409610-3 (Version None)
Quarter: 2009Q4

REPORT INFORMATION
  Report Type: 
  Country: None (occurrence: None)
  Receive Date: 20091022
  Receipt Date: 20091009
  Transmission Date: 20100525
  Serious: Yes (Other)
  Sender: FDA-Public Use
  Company Number: US-PFIZER INC-2009281577

PATIENT
  Sex: Male

DRUGS (5)
  1. LYRICA [Suspect]
     Indication: FIBROMYALGIA
     Dosage: UNK
  2. LYRICA [Suspect]
     Dosage: 350 MG, 1X/DAY
     Dates: start: 20090713
  3. LYRICA [Suspect]
     Dosage: 50 MG, EVERY 8 HOURS
  4. LYRICA [Suspect]
     Dosage: 150 MG, UNK
  5. TRAMADOL HCL [Concomitant]

REACTIONS (6)
  - CARDIAC ABLATION [None]
  - CARDIAC DISORDER [None]
  - DRUG INEFFECTIVE [None]
  - HYPERSOMNIA [None]
  - SOMNOLENCE [None]
  - WEIGHT INCREASED [None]
